FAERS Safety Report 8485138-4 (Version None)
Quarter: 2012Q2

REPORT INFORMATION
  Report Type: 
  Country: None (occurrence: None)
  Receive Date: 20120625
  Receipt Date: 20120619
  Transmission Date: 20120825
  Serious: Yes (Other)
  Sender: FDA-Public Use
  Company Number: A0981665A

PATIENT
  Sex: Male

DRUGS (1)
  1. ALUMINUM HYDROXIDE + MAGNESIUM CARBONATE + SODIUM ALGINATE L (ALHYD + [Suspect]
     Indication: PRODUCT USED FOR UNKNOWN INDICATION

REACTIONS (4)
  - CONVULSIONS LOCAL [None]
  - FEELING HOT [None]
  - MUSCLE SPASMS [None]
  - ANXIETY [None]
